FAERS Safety Report 26213540 (Version 1)
Quarter: 2025Q4

REPORT INFORMATION
  Report Type: Spontaneous
  Country: US (occurrence: US)
  Receive Date: 20251230
  Receipt Date: 20251230
  Transmission Date: 20260118
  Serious: No
  Sender: BIOMARIN
  Company Number: US-SA-2025SA375795

PATIENT
  Age: 26 Year
  Sex: Female

DRUGS (1)
  1. LARONIDASE [Suspect]
     Active Substance: LARONIDASE
     Indication: Mucopolysaccharidosis I
     Dosage: 20.3 DF, QW

REACTIONS (1)
  - Back disorder [Not Recovered/Not Resolved]
